FAERS Safety Report 23239421 (Version 1)
Quarter: 2023Q4

REPORT INFORMATION
  Report Type: Spontaneous
  Country: DE (occurrence: DE)
  Receive Date: 20231129
  Receipt Date: 20231129
  Transmission Date: 20240109
  Serious: Yes (Death, Other)
  Sender: FDA-Public Use
  Company Number: DE-AMGEN-DEUSP2023208716

PATIENT

DRUGS (4)
  1. NEULASTA [Suspect]
     Active Substance: PEGFILGRASTIM
     Indication: Neutropenia
     Dosage: 6 MILLIGRAM, ON DAY 2 OF EACH CHEMOTHERAPY CYCLE
     Route: 058
  2. DOCETAXEL [Concomitant]
     Active Substance: DOCETAXEL\DOCETAXEL ANHYDROUS
     Indication: Neoadjuvant therapy
     Dosage: 75 MILLIGRAM/SQ. METER, DAY ONE CHEMOTHERAPY, EVERY 3 WEEKS FOR SIX CYCLES
     Route: 042
  3. DOXORUBICIN [Concomitant]
     Active Substance: DOXORUBICIN
     Indication: Neoadjuvant therapy
     Dosage: 50 MILLIGRAM/SQ. METER, DAY ONE CHEMOTHERAPY, EVERY 3 WEEKS FOR SIX CYCLES
     Route: 042
  4. CYCLOPHOSPHAMIDE [Concomitant]
     Active Substance: CYCLOPHOSPHAMIDE
     Indication: Neoadjuvant therapy
     Dosage: 500 MILLIGRAM/SQ. METER, DAY ONE CHEMOTHERAPY, EVERY 3 WEEKS FOR SIX CYCLES
     Route: 042

REACTIONS (16)
  - Neutropenia [Unknown]
  - Adverse event [Unknown]
  - Febrile neutropenia [Unknown]
  - Leukopenia [Unknown]
  - Infection [Fatal]
  - Adverse drug reaction [Unknown]
  - Alopecia [Unknown]
  - Vomiting [Unknown]
  - Neck pain [Unknown]
  - Back pain [Unknown]
  - Nausea [Unknown]
  - Arthralgia [Unknown]
  - Pyrexia [Unknown]
  - Asthenia [Unknown]
  - Pain in extremity [Unknown]
  - Bone pain [Unknown]
